FAERS Safety Report 6724229-2 (Version None)
Quarter: 2010Q2

REPORT INFORMATION
  Report Type: 
  Country: None (occurrence: None)
  Receive Date: 20100513
  Receipt Date: 20100506
  Transmission Date: 20101027
  Serious: Yes (Hospitalization, Disabling, Other)
  Sender: FDA-Public Use
  Company Number: US-MERCK-1003USA04602

PATIENT
  Age: 70 Year
  Sex: Female
  Weight: 69 kg

DRUGS (14)
  1. FOSAMAX [Suspect]
     Indication: OSTEOPENIA
     Route: 048
     Dates: start: 20060101
  2. ACTONEL [Suspect]
     Indication: OSTEOPENIA
     Route: 065
  3. METHOTREXATE [Concomitant]
     Indication: RHEUMATOID ARTHRITIS
     Route: 048
  4. PREDNISONE [Concomitant]
     Indication: RHEUMATOID ARTHRITIS
     Route: 048
  5. MOBIC [Concomitant]
     Indication: RHEUMATOID ARTHRITIS
     Route: 048
  6. NORVASC [Concomitant]
     Indication: HYPERTENSION
     Route: 048
  7. VITAMIN D (UNSPECIFIED) [Concomitant]
     Route: 065
  8. DOXYCYCLINE [Concomitant]
     Indication: ROSACEA
     Route: 065
  9. DIURETIC (UNSPECIFIED) [Concomitant]
     Route: 065
  10. BENAZEPRIL HYDROCHLORIDE [Concomitant]
     Indication: HYPERTENSION
     Route: 048
  11. LEXAPRO [Concomitant]
     Route: 065
  12. FOLIC ACID [Concomitant]
     Route: 065
  13. PROTONIX [Concomitant]
     Route: 065
  14. ALENDRONATE SODIUM [Suspect]
     Indication: OSTEOPENIA
     Route: 048

REACTIONS (7)
  - ANAEMIA [None]
  - BLOOD GLUCOSE INCREASED [None]
  - FEMUR FRACTURE [None]
  - HYPONATRAEMIA [None]
  - IMPAIRED HEALING [None]
  - STRESS FRACTURE [None]
  - TOOTH DISORDER [None]
